FAERS Safety Report 16098083 (Version 1)
Quarter: 2019Q1

REPORT INFORMATION
  Report Type: Spontaneous
  Country: US (occurrence: US)
  Receive Date: 20190320
  Receipt Date: 20190320
  Transmission Date: 20190418
  Serious: Yes (Other)
  Sender: FDA-Public Use
  Company Number: US-ASTRAZENECA-2019SE42334

PATIENT

DRUGS (11)
  1. TAGAMET [Concomitant]
     Active Substance: CIMETIDINE
     Dates: start: 20130924
  2. PREVACID [Concomitant]
     Active Substance: LANSOPRAZOLE
     Dates: start: 20140916
  3. RANITIDINE. [Concomitant]
     Active Substance: RANITIDINE
     Dates: start: 20131003
  4. GAVISCON [Concomitant]
     Active Substance: ALUMINUM HYDROXIDE\MAGNESIUM CARBONATE
     Dates: start: 20140916
  5. PRILOSEC [Suspect]
     Active Substance: OMEPRAZOLE MAGNESIUM
     Route: 048
     Dates: start: 20130320
  6. PRILOSEC [Suspect]
     Active Substance: OMEPRAZOLE MAGNESIUM
     Dosage: OMEPRAZOLE MAGNESIUM
     Route: 065
  7. IBUPROFEN. [Concomitant]
     Active Substance: IBUPROFEN
     Dates: start: 20130320
  8. ERYTHROMYCIN. [Suspect]
     Active Substance: ERYTHROMYCIN
     Route: 065
     Dates: start: 20130824
  9. METFORMIN [Concomitant]
     Active Substance: METFORMIN HYDROCHLORIDE
     Dates: start: 20130916
  10. ASPIRIN. [Concomitant]
     Active Substance: ASPIRIN
     Dates: start: 20171101
  11. LANSOPRAZOLE. [Concomitant]
     Active Substance: LANSOPRAZOLE
     Dates: start: 20130320

REACTIONS (1)
  - Anaphylactic reaction [Unknown]
